FAERS Safety Report 23288485 (Version 1)
Quarter: 2023Q4

REPORT INFORMATION
  Report Type: Report from Study
  Country: ZA (occurrence: ZA)
  Receive Date: 20231212
  Receipt Date: 20231212
  Transmission Date: 20240110
  Serious: Yes (Hospitalization, Other)
  Sender: FDA-Public Use
  Company Number: ZA-AstraZeneca-2023A277357

PATIENT
  Sex: Male
  Weight: 7.3 kg

DRUGS (1)
  1. SYNAGIS [Suspect]
     Active Substance: PALIVIZUMAB
     Indication: Antiviral prophylaxis
     Route: 030

REACTIONS (6)
  - Meningitis bacterial [Unknown]
  - Infection [Unknown]
  - Encephalopathy neonatal [Unknown]
  - Immunodeficiency [Unknown]
  - COVID-19 pneumonia [Unknown]
  - Chronic respiratory disease [Unknown]
